FAERS Safety Report 6054986-2 (Version None)
Quarter: 2009Q1

REPORT INFORMATION
  Report Type: 
  Country: None (occurrence: None)
  Receive Date: 20090128
  Receipt Date: 20090122
  Transmission Date: 20090719
  Serious: Yes (Other)
  Sender: FDA-Public Use
  Company Number: US-NOVOPROD-283111

PATIENT
  Sex: Female
  Weight: 61.224 kg

DRUGS (4)
  1. LEVEMIR [Suspect]
     Indication: DIABETES MELLITUS
     Dosage: 10 IU IN AM, 9 IU IN PM
     Route: 058
     Dates: start: 20060101
  2. LEVEMIR [Suspect]
     Dosage: 10 IU IN AM, 8 IU IN PM
     Route: 058
     Dates: start: 20060101
  3. HUMALOG [Concomitant]
     Indication: DIABETES MELLITUS
     Dosage: 3 IU IN AM
     Route: 058
  4. HUMALOG [Concomitant]
     Dosage: 2 IU IN AM

REACTIONS (4)
  - BLOOD GLUCOSE DECREASED [None]
  - BLOOD GLUCOSE FLUCTUATION [None]
  - CONVULSION [None]
  - DEVICE FAILURE [None]
